FAERS Safety Report 6337388-0 (Version None)
Quarter: 2009Q3

REPORT INFORMATION
  Report Type: 
  Country: None (occurrence: None)
  Receive Date: 20090902
  Receipt Date: 20090806
  Transmission Date: 20100115
  Serious: Yes (Other)
  Sender: FDA-Public Use
  Company Number: CA-JNJFOC-20090708236

PATIENT
  Sex: Male

DRUGS (3)
  1. TYLENOL MUSCLE ACHES AND BODY PAIN [Suspect]
     Route: 048
  2. TYLENOL MUSCLE ACHES AND BODY PAIN [Suspect]
     Indication: FALL
     Route: 048
  3. ARICEPT [Concomitant]

REACTIONS (3)
  - AMNESIA [None]
  - DRUG PRESCRIBING ERROR [None]
  - LOSS OF CONSCIOUSNESS [None]
